FAERS Safety Report 9060541 (Version 7)
Quarter: 2014Q4

REPORT INFORMATION
  Report Type: Spontaneous
  Country: US (occurrence: US)
  Receive Date: 20130212
  Receipt Date: 20141107
  Transmission Date: 20150529
  Serious: Yes (Hospitalization, Other)
  Sender: FDA-Public Use
  Company Number: US-009507513-1302USA004871

PATIENT
  Sex: Female
  Weight: 70.75 kg

DRUGS (4)
  1. SYNTHROID [Concomitant]
     Active Substance: LEVOTHYROXINE SODIUM
     Indication: HYPOTHYROIDISM
  2. FOSAMAX PLUS D [Suspect]
     Active Substance: ALENDRONATE SODIUM\CHOLECALCIFEROL
     Indication: OSTEOPOROSIS
     Dosage: 70 MG, UNK/ +D 5600
     Route: 048
  3. SYNTHROID [Concomitant]
     Active Substance: LEVOTHYROXINE SODIUM
     Indication: HYPERTHYROIDISM
     Dosage: 88 MICROGRAM, QD
     Dates: start: 1994
  4. FOSAMAX [Suspect]
     Active Substance: ALENDRONATE SODIUM
     Indication: OSTEOPOROSIS
     Dosage: 70 MG, QW
     Route: 048
     Dates: start: 1996, end: 200912

REACTIONS (25)
  - Vitamin D deficiency [Unknown]
  - Adverse event [Unknown]
  - Joint swelling [Unknown]
  - Intramedullary rod insertion [Unknown]
  - Drug hypersensitivity [Unknown]
  - Bursitis [Unknown]
  - Muscular weakness [Recovering/Resolving]
  - Femur fracture [Unknown]
  - Impaired healing [Unknown]
  - Haemorrhage [Unknown]
  - Antinuclear antibody [Unknown]
  - Osteopenia [Unknown]
  - Osteochondroma [Unknown]
  - Tendonitis [Unknown]
  - Device failure [Unknown]
  - Pain in extremity [Recovering/Resolving]
  - Alopecia [Unknown]
  - Basal cell carcinoma [Unknown]
  - Intervertebral disc degeneration [Unknown]
  - Antinuclear antibody positive [Unknown]
  - Basedow^s disease [Unknown]
  - Insomnia [Unknown]
  - Dysphagia [Unknown]
  - Bone pain [Unknown]
  - Constipation [Unknown]

NARRATIVE: CASE EVENT DATE: 2003
